FAERS Safety Report 23393923 (Version 2)
Quarter: 2024Q1

REPORT INFORMATION
  Report Type: Spontaneous
  Country: US (occurrence: US)
  Receive Date: 20240111
  Receipt Date: 20240226
  Transmission Date: 20240410
  Serious: No
  Sender: FDA-Public Use
  Company Number: US-PFIZER INC-202400001190

PATIENT
  Age: 7 Year
  Sex: Male

DRUGS (2)
  1. SOMATROPIN [Suspect]
     Active Substance: SOMATROPIN
     Dosage: 0.8 MG
  2. SOMATROPIN [Suspect]
     Active Substance: SOMATROPIN
     Dosage: 2 MG, ALTERNATE DAY

REACTIONS (2)
  - Drug ineffective [Unknown]
  - Off label use [Unknown]
